FAERS Safety Report 17202238 (Version 5)
Quarter: 2020Q2

REPORT INFORMATION
  Report Type: Spontaneous
  Country: US (occurrence: US)
  Receive Date: 20191226
  Receipt Date: 20200611
  Transmission Date: 20200713
  Serious: Yes (Hospitalization)
  Sender: FDA-Public Use
  Company Number: US-PFIZER INC-2018518249

PATIENT
  Age: 70 Year
  Sex: Female
  Weight: 101 kg

DRUGS (25)
  1. METOPROLOL. [Concomitant]
     Active Substance: METOPROLOL
     Dosage: 50 MG, UNK (1 NIGHT)
  2. ATORVASTATIN [Concomitant]
     Active Substance: ATORVASTATIN
     Dosage: 10 MG, 1X/DAY(1NIGHT)
  3. LOCOID LIPOCREME [Concomitant]
     Dosage: UNK, AS NEEDED
  4. ROPINIROLE. [Concomitant]
     Active Substance: ROPINIROLE
     Indication: LIMB DISCOMFORT
     Dosage: 2 MG, 3X/DAY
  5. DULOXETINE DR [Concomitant]
     Active Substance: DULOXETINE
     Dosage: 30 MG, DAILY
  6. IRON [Concomitant]
     Active Substance: IRON
     Dosage: 65 MG, 1X/DAY(1 NIGHT)
  7. NOVOLOG [Concomitant]
     Active Substance: INSULIN ASPART
     Indication: BLOOD GLUCOSE ABNORMAL
     Dosage: UNK (FLEX PEN 34 UNITS 4 TIMES PER DAY)
  8. LYRICA [Suspect]
     Active Substance: PREGABALIN
     Indication: NERVE INJURY
     Dosage: 200 MG, 3X/DAY (TAKE 1 CAPSULE 3 TIMES A DAY)
     Route: 048
  9. LEVEMIR [Concomitant]
     Active Substance: INSULIN DETEMIR
     Indication: BLOOD GLUCOSE ABNORMAL
     Dosage: UNK  (FLEX TOUCH 70UNITS AT BED TIME)
  10. METOPROLOL. [Concomitant]
     Active Substance: METOPROLOL
     Indication: BLOOD PRESSURE ABNORMAL
     Dosage: 100 MG, 1X/DAY(1 MORNING)
  11. ASPIRIN. [Concomitant]
     Active Substance: ASPIRIN
     Indication: COAGULATION FACTOR DEFICIENCY
     Dosage: 81 MG, 1X/DAY(1 NIGHT)
  12. LYRICA [Suspect]
     Active Substance: PREGABALIN
     Indication: TYPE 2 DIABETES MELLITUS
  13. OMEPRAZOLE. [Concomitant]
     Active Substance: OMEPRAZOLE
     Indication: ABDOMINAL DISCOMFORT
     Dosage: 20 MG, 2X/DAY (1 MORNING AND 1 NIGHT)
  14. LISINOPRIL. [Concomitant]
     Active Substance: LISINOPRIL
     Indication: BLOOD PRESSURE ABNORMAL
     Dosage: 10 MG, 1X/DAY (1 MORNING)
  15. NORVASC [Concomitant]
     Active Substance: AMLODIPINE BESYLATE
     Dosage: 10 MG, 1X/DAY(1 MORNING)
  16. SMZ-TMP [Concomitant]
     Active Substance: SULFAMETHOXAZOLE\TRIMETHOPRIM
     Dosage: 1 MG, UNK (MON/WED/FRI)
  17. TRAZODONE [Concomitant]
     Active Substance: TRAZODONE HYDROCHLORIDE
     Indication: SLEEP DISORDER
     Dosage: 200 MG, 1X/DAY(2 BED TIME)
  18. VITAMIN D3 [Concomitant]
     Active Substance: CHOLECALCIFEROL
     Dosage: 2000 IU, ALTERNATE DAY (1 EVERY OTHER DAY)
  19. CRESTOR [Concomitant]
     Active Substance: ROSUVASTATIN CALCIUM
     Dosage: UNK
  20. LYRICA [Suspect]
     Active Substance: PREGABALIN
     Indication: DIABETIC NEUROPATHY
  21. LYRICA [Suspect]
     Active Substance: PREGABALIN
     Indication: NEURALGIA
  22. MYFORTIC [Concomitant]
     Active Substance: MYCOPHENOLATE SODIUM
     Indication: TRANSPLANT REJECTION
     Dosage: 540 MG, 2X/DAY ((3) 2 TIMES PER DAY)
  23. TACROLIMUS. [Concomitant]
     Active Substance: TACROLIMUS
     Indication: TRANSPLANT REJECTION
     Dosage: 2 MG, 2X/DAY
  24. METFORMIN [Concomitant]
     Active Substance: METFORMIN HYDROCHLORIDE
     Indication: BLOOD GLUCOSE ABNORMAL
     Dosage: 1000 MG, 2X/DAY(MORNING AND NIGHT)
  25. TYLENOL [Concomitant]
     Active Substance: ACETAMINOPHEN
     Indication: PAIN
     Dosage: UNK, AS NEEDED

REACTIONS (5)
  - Circumstance or information capable of leading to medication error [Unknown]
  - Withdrawal syndrome [Recovered/Resolved]
  - Chills [Recovered/Resolved]
  - Product dose omission [Unknown]
  - Hyperhidrosis [Recovered/Resolved]
